FAERS Safety Report 13463113 (Version 1)
Quarter: 2017Q2

REPORT INFORMATION
  Report Type: Spontaneous
  Country: US (occurrence: US)
  Receive Date: 20170420
  Receipt Date: 20170420
  Transmission Date: 20170830
  Serious: No
  Sender: FDA-Public Use
  Company Number: US-BAYER-2017-073717

PATIENT
  Age: 63 Year
  Sex: Female

DRUGS (1)
  1. BETASERON [Suspect]
     Active Substance: INTERFERON BETA-1B
     Indication: MULTIPLE SCLEROSIS
     Dosage: 0.3 MG, BIW
     Dates: start: 1998

REACTIONS (6)
  - Influenza like illness [None]
  - Product use issue [None]
  - Alopecia [None]
  - Viral upper respiratory tract infection [Recovered/Resolved]
  - Fatigue [None]
  - Chills [None]

NARRATIVE: CASE EVENT DATE: 201703
